FAERS Safety Report 4455025-7 (Version None)
Quarter: 2004Q3

REPORT INFORMATION
  Report Type: 
  Country: None (occurrence: None)
  Receive Date: 20040921
  Receipt Date: 20040913
  Transmission Date: 20050211
  Serious: Yes (Hospitalization)
  Sender: FDA-Public Use
  Company Number: FR-BRISTOL-MYERS SQUIBB COMPANY-12699963

PATIENT
  Age: 70 Year
  Sex: Female

DRUGS (6)
  1. PRAVASTATIN [Suspect]
     Route: 048
     Dates: end: 20040815
  2. PROPOFAN [Suspect]
     Route: 048
     Dates: end: 20040815
  3. SOTALOL HCL [Suspect]
     Route: 048
  4. DIOSMIL [Concomitant]
     Route: 048
  5. LECTIL [Suspect]
     Route: 048
  6. RABEPRAZOLE SODIUM [Suspect]
     Route: 048

REACTIONS (2)
  - HEPATIC ENZYME INCREASED [None]
  - KIDNEY INFECTION [None]
